FAERS Safety Report 8885795 (Version 4)
Quarter: 2013Q3

REPORT INFORMATION
  Report Type: Report from Study
  Country: JP (occurrence: JP)
  Receive Date: 20121102
  Receipt Date: 20130821
  Transmission Date: 20140515
  Serious: Yes (Hospitalization, Other)
  Sender: FDA-Public Use
  Company Number: JP-VERTEX PHARMACEUTICAL INC.-AE-2012-009608

PATIENT
  Age: 68 Year
  Sex: Female

DRUGS (9)
  1. PEGINTERFERON ALFA-2B [Suspect]
     Indication: CHRONIC HEPATITIS C
     Dosage: 1.5 ?G/KG, QW
     Route: 058
     Dates: start: 20120426, end: 20121009
  2. MAGMITT [Concomitant]
     Dosage: 1.5 G, QD
     Route: 048
     Dates: end: 20130523
  3. MYSER [Concomitant]
     Dosage: UNK, QD/PRN
     Route: 061
     Dates: end: 20120814
  4. VX-950 (TELAPREVIR) [Suspect]
     Indication: CHRONIC HEPATITIS C
     Dosage: 1500 MG, QD
     Route: 048
     Dates: start: 20120426, end: 20120718
  5. REBETOL [Suspect]
     Indication: CHRONIC HEPATITIS C
     Dosage: 400 MG, QD
     Route: 048
     Dates: start: 20120426, end: 20120718
  6. REBETOL [Suspect]
     Dosage: 200 MG, QD
     Route: 048
     Dates: start: 20120719, end: 20120725
  7. REBETOL [Suspect]
     Dosage: 200 MG, QD
     Route: 048
     Dates: start: 20120809, end: 20120814
  8. REBETOL [Suspect]
     Dosage: 400 MG, QD
     Route: 048
     Dates: start: 20120815, end: 20120830
  9. REBETOL [Suspect]
     Dosage: 500 MG, QD (400 MG AND 600 MG, ALTERNATELY)
     Route: 048
     Dates: start: 20120831, end: 20121011

REACTIONS (4)
  - Decreased appetite [Recovered/Resolved]
  - Anaemia [Recovered/Resolved]
  - Anaemia [Recovered/Resolved]
  - Decreased appetite [Recovered/Resolved]
